FAERS Safety Report 15075040 (Version 2)
Quarter: 2023Q4

REPORT INFORMATION
  Report Type: Spontaneous
  Country: US (occurrence: US)
  Receive Date: 20180627
  Receipt Date: 20231109
  Transmission Date: 20240110
  Serious: Yes (Other)
  Sender: FDA-Public Use
  Company Number: US-SAOL THERAPEUTICS-2017SAO01232

PATIENT
  Sex: Female

DRUGS (9)
  1. BACLOFEN [Suspect]
     Active Substance: BACLOFEN
     Indication: Spinal pain
     Dosage: 355 ?G, \DAY
     Route: 037
     Dates: start: 20170419, end: 201705
  2. BACLOFEN [Suspect]
     Active Substance: BACLOFEN
     Dosage: 345 ?G, \DAY
     Route: 037
     Dates: start: 201705, end: 201706
  3. BACLOFEN [Suspect]
     Active Substance: BACLOFEN
     Dosage: 335 ?G, \DAY
     Route: 037
     Dates: start: 201706, end: 20170718
  4. BACLOFEN [Suspect]
     Active Substance: BACLOFEN
     Dosage: 295 ?G, \DAY
     Route: 037
     Dates: start: 20170718
  5. FENTANYL [Suspect]
     Active Substance: FENTANYL\FENTANYL CITRATE
     Dosage: 355 ?G, \DAY
     Route: 037
     Dates: start: 20170419, end: 201705
  6. FENTANYL [Suspect]
     Active Substance: FENTANYL\FENTANYL CITRATE
     Dosage: 345 ?G, UNK
     Route: 037
     Dates: start: 201705, end: 201706
  7. FENTANYL [Suspect]
     Active Substance: FENTANYL\FENTANYL CITRATE
     Dosage: 335 ?G, \DAY
     Route: 037
     Dates: start: 201706, end: 20170718
  8. FENTANYL [Suspect]
     Active Substance: FENTANYL\FENTANYL CITRATE
     Dosage: 295 ?G, \DAY
     Route: 037
     Dates: start: 20170718
  9. UNSPECIFIED INGREDIENT [Concomitant]
     Active Substance: UNSPECIFIED INGREDIENT

REACTIONS (10)
  - Weight decreased [Unknown]
  - Implant site erosion [Unknown]
  - Gait disturbance [Unknown]
  - Pain in extremity [Unknown]
  - Medical device discomfort [Not Recovered/Not Resolved]
  - Emotional distress [Unknown]
  - Overdose [Unknown]
  - Pain [Unknown]
  - Off label use [Unknown]
  - Device dislocation [Not Recovered/Not Resolved]

NARRATIVE: CASE EVENT DATE: 20170101
